FAERS Safety Report 11211995 (Version 1)
Quarter: 2015Q2

REPORT INFORMATION
  Report Type: Spontaneous
  Country: US (occurrence: None)
  Receive Date: 20150622
  Receipt Date: 20150622
  Transmission Date: 20150821
  Serious: No
  Sender: FDA-Public Use
  Company Number: None

PATIENT
  Age: 57 Year
  Sex: Male
  Weight: 174.1 kg

DRUGS (1)
  1. HYDROCORTISONE. [Suspect]
     Active Substance: HYDROCORTISONE
     Dates: start: 20150525, end: 20150605

REACTIONS (3)
  - Pruritus [None]
  - Skin swelling [None]
  - Urticaria [None]

NARRATIVE: CASE EVENT DATE: 20150605
